FAERS Safety Report 6875053-1 (Version None)
Quarter: 2010Q3

REPORT INFORMATION
  Report Type: 
  Country: None (occurrence: None)
  Receive Date: 20100727
  Receipt Date: 20100722
  Transmission Date: 20110219
  Serious: Yes (Hospitalization, Other)
  Sender: FDA-Public Use
  Company Number: IN-AMGEN-UK265984

PATIENT
  Sex: Male

DRUGS (11)
  1. DENOSUMAB [Suspect]
     Indication: METASTASES TO BONE
     Route: 058
     Dates: start: 20070723, end: 20071210
  2. ZOMETA [Suspect]
     Route: 042
     Dates: start: 20070723, end: 20071210
  3. DECADRON [Concomitant]
     Route: 065
     Dates: start: 20070401
  4. CALCIUM [Concomitant]
     Dates: start: 20070723
  5. VITAMIN D3 [Concomitant]
     Route: 042
     Dates: start: 20070723
  6. DEXAMETHASONE [Concomitant]
     Dates: start: 20070820
  7. DEXAMETHASONE [Concomitant]
     Dates: end: 20080215
  8. CINNARIZINE [Concomitant]
     Dates: start: 20070829, end: 20080106
  9. ALLOPURINOL [Concomitant]
     Dates: start: 20080212, end: 20080215
  10. RANITIDINE [Concomitant]
     Dates: start: 20080215
  11. LACTOBACILLUS ACIDOPHILUS [Concomitant]
     Route: 065
     Dates: start: 20080214

REACTIONS (6)
  - ASTHENIA [None]
  - DECREASED APPETITE [None]
  - DIARRHOEA [None]
  - DIZZINESS [None]
  - MENTAL STATUS CHANGES [None]
  - WEIGHT DECREASED [None]
